FAERS Safety Report 8428623-3 (Version None)
Quarter: 2012Q2

REPORT INFORMATION
  Report Type: 
  Country: None (occurrence: None)
  Receive Date: 20120606
  Receipt Date: 20120529
  Transmission Date: 20120825
  Serious: Yes (Disabling)
  Sender: FDA-Public Use
  Company Number: TIR-01146

PATIENT
  Sex: Female

DRUGS (1)
  1. LEVOTHYROXINE SODIUM [Suspect]
     Indication: THYROIDECTOMY
     Dates: start: 20120301

REACTIONS (3)
  - LYMPHADENOPATHY [None]
  - LYMPH NODE PAIN [None]
  - REACTION TO DRUG EXCIPIENTS [None]
